FAERS Safety Report 10974684 (Version 2)
Quarter: 2017Q1

REPORT INFORMATION
  Report Type: Report from Study
  Country: None (occurrence: US)
  Receive Date: 20150401
  Receipt Date: 20170310
  Transmission Date: 20170428
  Serious: Yes (Other)
  Sender: FDA-Public Use
  Company Number: US-ABBVIE-15K-163-1366865-00

PATIENT
  Age: 34 Year
  Sex: Female
  Weight: 65.83 kg

DRUGS (7)
  1. ZANAFLEX [Concomitant]
     Active Substance: TIZANIDINE HYDROCHLORIDE
     Indication: MUSCLE SPASMS
  2. LINZESS [Concomitant]
     Active Substance: LINACLOTIDE
     Indication: IMPAIRED GASTRIC EMPTYING
  3. OXYCODONE [Concomitant]
     Active Substance: OXYCODONE
     Indication: PAIN
  4. PRILOSEC [Concomitant]
     Active Substance: OMEPRAZOLE MAGNESIUM
     Indication: IMPAIRED GASTRIC EMPTYING
  5. HUMIRA [Suspect]
     Active Substance: ADALIMUMAB
     Indication: RHEUMATOID ARTHRITIS
     Route: 058
     Dates: start: 20150317, end: 201606
  6. TOPAMAX [Concomitant]
     Active Substance: TOPIRAMATE
     Indication: INTERVERTEBRAL DISC PROTRUSION
  7. OXYCONTIN [Concomitant]
     Active Substance: OXYCODONE HYDROCHLORIDE
     Indication: PAIN

REACTIONS (8)
  - Migraine [Recovered/Resolved]
  - Abdominal pain [Not Recovered/Not Resolved]
  - Amnesia [Unknown]
  - Arthralgia [Unknown]
  - Sinus congestion [Not Recovered/Not Resolved]
  - Weight decreased [Unknown]
  - Ovarian cyst ruptured [Recovered/Resolved]
  - Vomiting [Recovered/Resolved]

NARRATIVE: CASE EVENT DATE: 20150318
